FAERS Safety Report 13181181 (Version 1)
Quarter: 2017Q1

REPORT INFORMATION
  Report Type: Spontaneous
  Country: US (occurrence: US)
  Receive Date: 20170202
  Receipt Date: 20170202
  Transmission Date: 20170428
  Serious: No
  Sender: FDA-Public Use
  Company Number: US-SMITH AND NEPHEW, INC-2016SMT00445

PATIENT
  Age: 68 Year
  Sex: Male
  Weight: 69.84 kg

DRUGS (9)
  1. METFORMIN HYDROCHLORIDE. [Concomitant]
     Active Substance: METFORMIN HYDROCHLORIDE
  2. MULTI-VITAMIN [Concomitant]
     Active Substance: .ALPHA.-TOCOPHEROL ACETATE, DL-\ASCORBIC ACID\CYANOCOBALAMIN\FLUORIDE ION\FOLIC ACID\NIACIN\PYRIDOXINE\RIBOFLAVIN\THIAMINE\VITAMIN A\VITAMIN D
  3. LANTUS [Concomitant]
     Active Substance: INSULIN GLARGINE
  4. LISINOPRIL. [Concomitant]
     Active Substance: LISINOPRIL
  5. INVOKANA [Concomitant]
     Active Substance: CANAGLIFLOZIN
  6. REGRANEX [Suspect]
     Active Substance: BECAPLERMIN
     Indication: DIABETIC FOOT
     Dosage: UNK, 1X/DAY
     Route: 061
     Dates: start: 20160418
  7. APIDRA [Concomitant]
     Active Substance: INSULIN GLULISINE
  8. IBUPROFEN. [Concomitant]
     Active Substance: IBUPROFEN
  9. PRAVASTATIN SODIUM. [Concomitant]
     Active Substance: PRAVASTATIN SODIUM

REACTIONS (2)
  - Pain in extremity [Unknown]
  - Joint swelling [Unknown]

NARRATIVE: CASE EVENT DATE: 201605
